FAERS Safety Report 7808673-8 (Version None)
Quarter: 2011Q4

REPORT INFORMATION
  Report Type: 
  Country: None (occurrence: None)
  Receive Date: 20111012
  Receipt Date: 20110930
  Transmission Date: 20120403
  Serious: Yes (Hospitalization)
  Sender: FDA-Public Use
  Company Number: NL-JNJFOC-20111001022

PATIENT
  Sex: Male
  Weight: 66 kg

DRUGS (2)
  1. ANTIBIOTICS [Concomitant]
     Indication: CROHN'S DISEASE
  2. REMICADE [Suspect]
     Indication: CROHN'S DISEASE
     Route: 042
     Dates: start: 20080602

REACTIONS (2)
  - WEIGHT DECREASED [None]
  - APHAGIA [None]
